FAERS Safety Report 14687604 (Version 2)
Quarter: 2018Q2

REPORT INFORMATION
  Report Type: Spontaneous
  Country: CZ (occurrence: CZ)
  Receive Date: 20180328
  Receipt Date: 20180403
  Transmission Date: 20180711
  Serious: Yes (Other)
  Sender: FDA-Public Use
  Company Number: CZ-AMGEN-CZESP2018039371

PATIENT
  Age: 54 Year
  Sex: Female
  Weight: 48 kg

DRUGS (4)
  1. PLENDIL [Concomitant]
     Active Substance: FELODIPINE
     Indication: HYPERTENSION
     Dosage: 5 MG, QD
     Dates: start: 201501
  2. PROLIA [Suspect]
     Active Substance: DENOSUMAB
     Indication: OSTEOPOROTIC FRACTURE
     Dosage: 60 MG, Q6MO
     Route: 058
     Dates: start: 20111125
  3. OMEPRAZOLE. [Concomitant]
     Active Substance: OMEPRAZOLE
     Indication: GASTRODUODENAL ULCER
     Dosage: 20 MG, QD
  4. ITOPRID [Concomitant]
     Indication: GASTRODUODENAL ULCER
     Dosage: 50 MG, TID
     Dates: start: 201501

REACTIONS (2)
  - Thoracic vertebral fracture [Recovering/Resolving]
  - Lumbar vertebral fracture [Unknown]
